FAERS Safety Report 6054707-3 (Version None)
Quarter: 2009Q1

REPORT INFORMATION
  Report Type: 
  Country: None (occurrence: None)
  Receive Date: 20090128
  Receipt Date: 20090122
  Transmission Date: 20090719
  Serious: Yes (Hospitalization, Other)
  Sender: FDA-Public Use
  Company Number: DE-ALLERGAN-0900445US

PATIENT
  Sex: Female

DRUGS (1)
  1. VISTABEL [Suspect]
     Indication: SKIN WRINKLING
     Dosage: 18 UNITS, SINGLE
     Route: 030
     Dates: start: 20090110, end: 20090110

REACTIONS (4)
  - DYSPHAGIA [None]
  - FACIAL PALSY [None]
  - PARAESTHESIA [None]
  - PARAESTHESIA ORAL [None]
